FAERS Safety Report 17819902 (Version 2)
Quarter: 2020Q2

REPORT INFORMATION
  Report Type: Spontaneous
  Country: US (occurrence: US)
  Receive Date: 20200524
  Receipt Date: 20200601
  Transmission Date: 20200714
  Serious: Yes (Other)
  Sender: FDA-Public Use
  Company Number: US-BAXTER-2020BAX010627

PATIENT
  Age: 4 Year
  Sex: Male

DRUGS (9)
  1. DEXAMETHASONE. [Suspect]
     Active Substance: DEXAMETHASONE
     Indication: KAPOSI^S SARCOMA
     Route: 065
  2. BLEOMYCIN [Suspect]
     Active Substance: BLEOMYCIN SULFATE
     Indication: KAPOSI^S SARCOMA
     Dosage: 15 U/M2; CYCLICAL
     Route: 065
  3. VINCRISTINE [Suspect]
     Active Substance: VINCRISTINE
     Indication: KAPOSI^S SARCOMA
     Dosage: CYCLICAL
     Route: 065
  4. LOPINAVIR W /RITONAVIR [Concomitant]
     Indication: HIV TEST POSITIVE
     Route: 065
  5. PACLITAXEL. [Suspect]
     Active Substance: PACLITAXEL
     Indication: KAPOSI^S SARCOMA
     Dosage: CYCLICAL
     Route: 065
  6. ABACAVIR. [Concomitant]
     Active Substance: ABACAVIR
     Indication: HIV TEST POSITIVE
     Route: 065
  7. DOXIL [Suspect]
     Active Substance: DOXORUBICIN HYDROCHLORIDE
     Indication: KAPOSI^S SARCOMA
     Dosage: CYCLICAL
     Route: 065
  8. DOXIL [Suspect]
     Active Substance: DOXORUBICIN HYDROCHLORIDE
     Dosage: CYCLICAL
     Route: 065
  9. LAMIVUDINE. [Concomitant]
     Active Substance: LAMIVUDINE
     Indication: HIV TEST POSITIVE
     Route: 065

REACTIONS (1)
  - Taeniasis [Recovered/Resolved]
